FAERS Safety Report 5477033-X (Version None)
Quarter: 2007Q4

REPORT INFORMATION
  Report Type: 
  Country: None (occurrence: None)
  Receive Date: 20071002
  Receipt Date: 20071002
  Transmission Date: 20080405
  Serious: Yes (Other)
  Sender: FDA-Public Use
  Company Number: None

PATIENT
  Age: 15 Year
  Sex: Male
  Weight: 72.5755 kg

DRUGS (2)
  1. CLINDAMYCIN 75 MG [Suspect]
     Indication: DYSURIA
     Dosage: 75 MB BID PO
     Route: 048
     Dates: start: 20070924, end: 20070929
  2. CLINDAMYCIN 75 MG [Suspect]
     Indication: URETHRITIS
     Dosage: 75 MB BID PO
     Route: 048
     Dates: start: 20070924, end: 20070929

REACTIONS (4)
  - DEPRESSION [None]
  - FEELING ABNORMAL [None]
  - FEELING OF DESPAIR [None]
  - SUICIDAL IDEATION [None]
